FAERS Safety Report 9011293 (Version 1)
Quarter: 2013Q1

REPORT INFORMATION
  Report Type: Other
  Country: GB (occurrence: GB)
  Receive Date: 20130109
  Receipt Date: 20130109
  Transmission Date: 20140127
  Serious: Yes (Death)
  Sender: FDA-Public Use
  Company Number: GB-WATSON-2012-23360

PATIENT
  Age: 29 Year
  Sex: Male
  Weight: 66 kg

DRUGS (12)
  1. DIAZEPAM (UNKNOWN) [Suspect]
     Indication: SEDATIVE THERAPY
     Dosage: 2 MG, TID
     Route: 065
  2. ZOMORPH [Suspect]
     Indication: PAIN
     Dosage: 20 MG, BID
     Route: 065
     Dates: start: 20090420
  3. PHENAZEPAM [Suspect]
     Indication: PRODUCT USED FOR UNKNOWN INDICATION
     Dosage: UNKNOWN
     Route: 065
  4. DIHYDROCODEINE [Suspect]
     Indication: PRODUCT USED FOR UNKNOWN INDICATION
     Dosage: UNKNOWN
     Route: 065
  5. GABAPENTIN [Concomitant]
     Indication: NEURALGIA
     Dosage: UNKNOWN
     Route: 065
  6. AMITRIPTYLINE [Concomitant]
     Indication: ANTIDEPRESSANT THERAPY
     Dosage: 25 MG, QID
     Route: 065
  7. AMITRIPTYLINE [Concomitant]
     Indication: ANALGESIC THERAPY
     Dosage: UNKNOWN
     Route: 065
  8. PROPRANOLOL [Concomitant]
     Indication: ANXIOLYTIC THERAPY
     Dosage: 10 MG, TID
     Route: 065
  9. CITALOPRAM [Concomitant]
     Indication: PRODUCT USED FOR UNKNOWN INDICATION
     Dosage: UNKNOWN
     Route: 065
  10. CHLORPHENIRAMINE                   /00072501/ [Concomitant]
     Indication: PRODUCT USED FOR UNKNOWN INDICATION
     Dosage: UNKNOWN
     Route: 065
  11. FERROUS SULPHATE                   /00023503/ [Concomitant]
     Indication: PRODUCT USED FOR UNKNOWN INDICATION
     Dosage: UNKNOWN
     Route: 065
  12. PARACETAMOL [Concomitant]
     Indication: PRODUCT USED FOR UNKNOWN INDICATION
     Dosage: UNKNOWN
     Route: 065

REACTIONS (3)
  - Toxicity to various agents [Fatal]
  - Drug interaction [Unknown]
  - Overdose [Unknown]
